FAERS Safety Report 8441065 (Version 2)
Quarter: 2014Q3

REPORT INFORMATION
  Report Type: Report from Study
  Country: US (occurrence: US)
  Receive Date: 20120305
  Receipt Date: 20140717
  Transmission Date: 20150326
  Serious: Yes (Death, Hospitalization)
  Sender: FDA-Public Use
  Company Number: US-JNJFOC-20120213008

PATIENT
  Age: 37 Year
  Sex: Female
  Weight: 74.7 kg

DRUGS (1)
  1. TYLENOL PM [Suspect]
     Active Substance: ACETAMINOPHEN\DIPHENHYDRAMINE
     Indication: PRODUCT USED FOR UNKNOWN INDICATION
     Dosage: 5 TABS 3-4 TIMES PER DAY FOR THE PAST SEVERAL DAYS
     Route: 048
     Dates: start: 201202

REACTIONS (3)
  - Overdose [Fatal]
  - Acute hepatic failure [Fatal]
  - Renal failure [Not Recovered/Not Resolved]

NARRATIVE: CASE EVENT DATE: 201202
